FAERS Safety Report 4982333-3 (Version None)
Quarter: 2006Q2

REPORT INFORMATION
  Report Type: 
  Country: None (occurrence: None)
  Receive Date: 20060419
  Receipt Date: 20060405
  Transmission Date: 20061013
  Serious: Yes (Other)
  Sender: FDA-Public Use
  Company Number: 2006RR-01989

PATIENT
  Age: 58 Year
  Sex: Male

DRUGS (1)
  1. METFORMIN HCL [Suspect]
     Indication: HEPATIC STEATOSIS
     Dosage: 1500 MG, QD

REACTIONS (1)
  - BLOOD THYROID STIMULATING HORMONE DECREASED [None]
